FAERS Safety Report 24149214 (Version 6)
Quarter: 2024Q4

REPORT INFORMATION
  Report Type: Spontaneous
  Country: US (occurrence: US)
  Receive Date: 20240729
  Receipt Date: 20241206
  Transmission Date: 20250115
  Serious: No
  Sender: BLUEPRINT MEDICINES
  Company Number: US-Blueprint Medicines Corporation-4307

PATIENT
  Age: 59 Year
  Sex: Female

DRUGS (2)
  1. AYVAKIT [Suspect]
     Active Substance: AVAPRITINIB
     Indication: Systemic mastocytosis
     Route: 048
     Dates: start: 20240712
  2. AYVAKIT [Suspect]
     Active Substance: AVAPRITINIB
     Route: 065
     Dates: start: 20240712, end: 20241129

REACTIONS (14)
  - Periorbital swelling [Unknown]
  - Nervousness [Unknown]
  - Irritability [Unknown]
  - Brain fog [Unknown]
  - Weight increased [Unknown]
  - Discomfort [Unknown]
  - Anxiety [Unknown]
  - Anger [Unknown]
  - Dissociation [Unknown]
  - Distractibility [Unknown]
  - Feeling jittery [Unknown]
  - Malaise [Unknown]
  - Agitation [Unknown]
  - Confusional state [Unknown]
